FAERS Safety Report 4731803-1 (Version None)
Quarter: 2005Q3

REPORT INFORMATION
  Report Type: 
  Country: None (occurrence: None)
  Receive Date: 20050802
  Receipt Date: 20040318
  Transmission Date: 20060218
  Serious: Yes (Death)
  Sender: FDA-Public Use
  Company Number: PHHO2004JP04065

PATIENT
  Age: 72 Year
  Sex: Male
  Weight: 59 kg

DRUGS (10)
  1. DIOVAN [Suspect]
     Indication: HYPERTENSION
     Dosage: NOT REPORTED
     Route: 048
     Dates: start: 20021205, end: 20021218
  2. DIOVAN [Suspect]
     Dosage: 60 MG, QD
     Route: 048
     Dates: start: 20021219, end: 20030408
  3. DIOVAN [Suspect]
     Dosage: 80 MG, QD
     Route: 048
     Dates: start: 20030409
  4. ALCOHOL [Suspect]
  5. CONIEL [Concomitant]
     Indication: HYPERTENSION
     Dosage: 4 MG, UNK
     Route: 048
     Dates: start: 19971118
  6. GLIMICRON [Concomitant]
     Indication: DIABETES MELLITUS
     Dosage: 20 MG, UNK
     Route: 048
     Dates: start: 20000519
  7. ALFAROL [Concomitant]
     Indication: OSTEOPOROSIS
     Dosage: 1 UG, UNK
     Dates: start: 20020531
  8. LIPITOR [Concomitant]
     Indication: HYPERCHOLESTEROLAEMIA
     Dosage: 10 MG, UNK
     Route: 048
     Dates: start: 20030423
  9. BEZATOL - SLOW RELEASE [Concomitant]
     Indication: HYPERCHOLESTEROLAEMIA
     Dosage: 200 MG, UNK
     Route: 048
     Dates: start: 20020711, end: 20030422
  10. CLEANAL [Concomitant]
     Indication: BRONCHITIS CHRONIC
     Route: 048
     Dates: start: 20020517, end: 20030408

REACTIONS (2)
  - LOSS OF CONSCIOUSNESS [None]
  - SUDDEN DEATH [None]
